FAERS Safety Report 7605778-1 (Version None)
Quarter: 2011Q3

REPORT INFORMATION
  Report Type: 
  Country: None (occurrence: None)
  Receive Date: 20110713
  Receipt Date: 20110705
  Transmission Date: 20111222
  Serious: Yes (Death)
  Sender: FDA-Public Use
  Company Number: RU-CELGENEUS-251-50794-11070354

PATIENT
  Sex: Female
  Weight: 55 kg

DRUGS (6)
  1. VIDAZA [Suspect]
     Dosage: 40 MILLIGRAM
     Route: 050
     Dates: start: 20110616, end: 20110622
  2. ERYTHROCYTES [Concomitant]
     Indication: SUPPORTIVE CARE
     Route: 065
     Dates: start: 20110610, end: 20110610
  3. ERYTHROCYTES [Concomitant]
     Route: 065
     Dates: start: 20110614, end: 20110614
  4. VIDAZA [Suspect]
     Route: 050
  5. ERYTHROCYTES [Concomitant]
     Route: 065
     Dates: start: 20110614, end: 20110614
  6. ERYTHROCYTES [Concomitant]
     Route: 065
     Dates: start: 20110616, end: 20110616

REACTIONS (1)
  - DEATH [None]
